FAERS Safety Report 4359451-6 (Version None)
Quarter: 2004Q2

REPORT INFORMATION
  Report Type: 
  Country: None (occurrence: None)
  Receive Date: 20040512
  Receipt Date: 20040427
  Transmission Date: 20050107
  Serious: Yes (Other)
  Sender: FDA-Public Use
  Company Number: USA040466170

PATIENT
  Sex: Female
  Weight: 43 kg

DRUGS (3)
  1. FORTEO [Suspect]
     Indication: OSTEOPOROSIS
     Dates: start: 20030101
  2. ADVAIR DISKUS 100/50 [Concomitant]
  3. PRAVACHOL [Concomitant]

REACTIONS (1)
  - RENAL IMPAIRMENT [None]
